FAERS Safety Report 12428634 (Version 1)
Quarter: 2016Q2

REPORT INFORMATION
  Report Type: Spontaneous
  Country: US (occurrence: None)
  Receive Date: 20160601
  Receipt Date: 20160601
  Transmission Date: 20160815
  Serious: Yes (Hospitalization, Other)
  Sender: FDA-Public Use
  Company Number: None

PATIENT
  Age: 53 Year
  Sex: Male
  Weight: 88 kg

DRUGS (1)
  1. NICARDIPINE, 40 MG [Suspect]
     Active Substance: NICARDIPINE
     Dosage: 40 MG CONTINUOUS TITRATE INTRAVENOUS DRIP
     Route: 041
     Dates: start: 20160524, end: 20160525

REACTIONS (2)
  - Hypoxia [None]
  - Respiratory failure [None]

NARRATIVE: CASE EVENT DATE: 20160525
